FAERS Safety Report 16557273 (Version 2)
Quarter: 2020Q1

REPORT INFORMATION
  Report Type: Spontaneous
  Country: US (occurrence: US)
  Receive Date: 20190711
  Receipt Date: 20200113
  Transmission Date: 20200409
  Serious: Yes (Hospitalization)
  Sender: FDA-Public Use
  Company Number: US-GW PHARMA-201907USGW2353

PATIENT

DRUGS (7)
  1. ALBUTEROL HFA [Concomitant]
     Active Substance: ALBUTEROL SULFATE
     Indication: PRODUCT USED FOR UNKNOWN INDICATION
     Dosage: TAKEN AS NEEDED
  2. EPIDIOLEX [Suspect]
     Active Substance: CANNABIDIOL
     Indication: CHILD MALTREATMENT SYNDROME
     Dosage: 16.4 MG/KG, 180 MILLIGRAM, QD
     Route: 048
     Dates: start: 2019, end: 201907
  3. EPIDIOLEX [Suspect]
     Active Substance: CANNABIDIOL
     Dosage: 16.1 MG/KG, 140 MILLIGRAM, QD
     Route: 048
     Dates: start: 201907
  4. CLONAZEPAM. [Concomitant]
     Active Substance: CLONAZEPAM
     Indication: PRODUCT USED FOR UNKNOWN INDICATION
     Dosage: UNK
     Route: 065
  5. ZYRTEC [Concomitant]
     Active Substance: CETIRIZINE HYDROCHLORIDE
     Indication: PRODUCT USED FOR UNKNOWN INDICATION
     Dosage: UNK
     Route: 065
  6. EPIDIOLEX [Suspect]
     Active Substance: CANNABIDIOL
     Indication: SEIZURE
     Dosage: 5.5 MG/KG, 60 MILLIGRAM, QD
     Route: 048
     Dates: start: 201905, end: 2019
  7. TOPAMAX [Concomitant]
     Active Substance: TOPIRAMATE
     Indication: PRODUCT USED FOR UNKNOWN INDICATION
     Dosage: UNK
     Route: 065

REACTIONS (6)
  - Hypernatraemia [Unknown]
  - Mental status changes [Unknown]
  - Vomiting [Unknown]
  - Dehydration [Unknown]
  - Weight decreased [Unknown]
  - Off label use [Unknown]

NARRATIVE: CASE EVENT DATE: 201907
